FAERS Safety Report 9863314 (Version 1)
Quarter: 2014Q1

REPORT INFORMATION
  Report Type: Spontaneous
  Country: US (occurrence: US)
  Receive Date: 20140203
  Receipt Date: 20140203
  Transmission Date: 20141002
  Serious: No
  Sender: FDA-Public Use
  Company Number: US-PFIZER INC-2014027321

PATIENT
  Sex: Female

DRUGS (2)
  1. CHANTIX [Suspect]
     Indication: SMOKING CESSATION THERAPY
     Dosage: UNK
     Dates: start: 20130228, end: 201305
  2. CHANTIX [Suspect]
     Dosage: UNK
     Dates: start: 201401

REACTIONS (1)
  - Drug ineffective [Not Recovered/Not Resolved]
